FAERS Safety Report 4921366-X (Version None)
Quarter: 2006Q1

REPORT INFORMATION
  Report Type: 
  Country: None (occurrence: None)
  Receive Date: 20060224
  Receipt Date: 20050601
  Transmission Date: 20060701
  Serious: Yes (Other)
  Sender: FDA-Public Use
  Company Number: PHEH2005US06169

PATIENT
  Age: 59 Year
  Sex: Female
  Weight: 71.201 kg

DRUGS (15)
  1. ZOMETA [Suspect]
     Indication: BREAST CANCER METASTATIC
     Dosage: 4 MG  Q3-4 WKS
     Route: 042
     Dates: start: 20010101, end: 20040901
  2. AREDIA [Suspect]
     Indication: BREAST CANCER METASTATIC
     Dosage: 90 MG, QMO
     Route: 042
     Dates: start: 19960101
  3. ADRIAMYCIN PFS [Concomitant]
     Dates: start: 19970501
  4. TAXOL [Concomitant]
     Dates: start: 19970501
  5. NEUPOGEN [Concomitant]
     Indication: GRANULOCYTE COUNT DECREASED
     Dates: start: 19970801
  6. MEGACE [Concomitant]
     Indication: HOT FLUSH
  7. IMITREX [Concomitant]
     Indication: MIGRAINE
     Dosage: 50-100 MG, UNK
  8. CHEMOTHERAPEUTICS,OTHER [Concomitant]
  9. TAMOXIFEN CITRATE [Concomitant]
     Indication: BREAST CANCER
     Route: 048
     Dates: start: 19960501
  10. ULTRAM [Concomitant]
     Indication: DISCOMFORT
  11. TAXOTERE [Concomitant]
     Indication: OVARIAN CANCER
     Dates: start: 20030101, end: 20030101
  12. CARBOPLATIN [Concomitant]
     Indication: OVARIAN CANCER
     Dates: start: 20030101, end: 20030101
  13. ARIMIDEX [Concomitant]
     Indication: BREAST CANCER
     Dosage: 1 MG, QD
  14. EPOGEN [Concomitant]
  15. AMISFOSTINE [Concomitant]
     Indication: BREAST CANCER

REACTIONS (30)
  - ABDOMINAL PAIN [None]
  - AGRANULOCYTOSIS [None]
  - ANAEMIA [None]
  - BONE DENSITY DECREASED [None]
  - BONE DISORDER [None]
  - DIARRHOEA [None]
  - DISCOMFORT [None]
  - FATIGUE [None]
  - FISTULA [None]
  - HAEMATOCRIT DECREASED [None]
  - IMPAIRED HEALING [None]
  - INFECTION [None]
  - LOCAL SWELLING [None]
  - NAUSEA [None]
  - NEUTROPHIL COUNT DECREASED [None]
  - OSTEOMYELITIS [None]
  - OSTEONECROSIS [None]
  - OSTEOSCLEROSIS [None]
  - OVARIAN CANCER [None]
  - PAIN [None]
  - PAIN IN JAW [None]
  - PURULENT DISCHARGE [None]
  - SALPINGO-OOPHORECTOMY UNILATERAL [None]
  - SWELLING [None]
  - TOOTH DISORDER [None]
  - TOOTH EXTRACTION [None]
  - VOMITING [None]
  - WHITE BLOOD CELL COUNT DECREASED [None]
  - WOUND DEBRIDEMENT [None]
  - WOUND TREATMENT [None]
